FAERS Safety Report 12529840 (Version 2)
Quarter: 2018Q1

REPORT INFORMATION
  Report Type: Report from Study
  Country: JP (occurrence: JP)
  Receive Date: 20160706
  Receipt Date: 20180316
  Transmission Date: 20180508
  Serious: Yes (Other)
  Sender: FDA-Public Use
  Company Number: PHJP2016JP018296

PATIENT
  Age: 31 Year
  Sex: Male
  Weight: 58 kg

DRUGS (4)
  1. BONALFA [Concomitant]
     Indication: PSORIASIS
     Dosage: UNK, PRN
     Route: 061
     Dates: end: 20161205
  2. COSENTYX [Suspect]
     Active Substance: SECUKINUMAB
     Indication: PSORIASIS
     Dosage: 300 MG, QW
     Route: 058
     Dates: start: 20160530, end: 20160620
  3. COSENTYX [Suspect]
     Active Substance: SECUKINUMAB
     Dosage: 300 MG, QW
     Route: 058
     Dates: start: 20160711, end: 20160711
  4. COSENTYX [Suspect]
     Active Substance: SECUKINUMAB
     Dosage: 300 MG, 4W
     Route: 058
     Dates: start: 20160808

REACTIONS (4)
  - Nasopharyngitis [Unknown]
  - Upper respiratory tract inflammation [Recovered/Resolved]
  - Chest X-ray abnormal [Unknown]
  - Pneumonia bacterial [Not Recovered/Not Resolved]

NARRATIVE: CASE EVENT DATE: 20160620
